FAERS Safety Report 14167201 (Version 21)
Quarter: 2020Q3

REPORT INFORMATION
  Report Type: Report from Study
  Country: DE (occurrence: DE)
  Receive Date: 20171108
  Receipt Date: 20180928
  Transmission Date: 20201105
  Serious: Yes (Hospitalization)
  Sender: FDA-Public Use
  Company Number: DE-ROCHE-2018649

PATIENT
  Age: 68 Year
  Sex: Male
  Weight: 95 kg

DRUGS (91)
  1. ALLOPURINOL. [Concomitant]
     Active Substance: ALLOPURINOL
     Indication: PROPHYLAXIS
     Route: 065
     Dates: start: 20170816, end: 20171201
  2. PANTOZOL [Concomitant]
     Active Substance: PANTOPRAZOLE SODIUM
     Indication: PROPHYLAXIS
     Route: 065
     Dates: start: 20170920, end: 20171017
  3. PLATELETS [Concomitant]
     Active Substance: HUMAN PLATELET, ALLOGENIC
     Route: 065
     Dates: start: 20180213, end: 20180213
  4. TAZOBAC [Concomitant]
     Active Substance: PIPERACILLIN SODIUM\TAZOBACTAM SODIUM
     Route: 042
     Dates: start: 20180117, end: 20180208
  5. TOREM [Concomitant]
     Active Substance: TORSEMIDE
     Indication: RENAL FAILURE
     Route: 065
     Dates: start: 20171107, end: 20171115
  6. TOREM [Concomitant]
     Active Substance: TORSEMIDE
     Route: 065
     Dates: start: 20171115, end: 20171130
  7. PERFALGAN [Concomitant]
     Active Substance: ACETAMINOPHEN
     Route: 042
     Dates: start: 20180118
  8. CLEXANE [Concomitant]
     Active Substance: ENOXAPARIN SODIUM
     Route: 065
     Dates: start: 20171221, end: 20171226
  9. NEUPOGEN [Concomitant]
     Active Substance: FILGRASTIM
     Route: 065
     Dates: start: 20180122
  10. NACL .9% [Concomitant]
     Route: 065
     Dates: start: 20171228, end: 20180103
  11. NACL .9% [Concomitant]
     Route: 055
     Dates: start: 20180130
  12. AMOXICILLIN. [Concomitant]
     Active Substance: AMOXICILLIN
     Dosage: 875/125 MG
     Route: 065
     Dates: start: 20180102, end: 20180115
  13. BIFITERAL [Concomitant]
     Active Substance: LACTULOSE
     Route: 065
     Dates: start: 20180128, end: 20180128
  14. LASIX [Concomitant]
     Active Substance: FUROSEMIDE
     Route: 042
     Dates: start: 20180128
  15. MERONEM [Concomitant]
     Active Substance: MEROPENEM
     Route: 065
     Dates: start: 20180303
  16. OTRIVEN NASENSPRAY [Concomitant]
     Route: 065
     Dates: start: 20180214, end: 20180223
  17. POLATUZUMAB VEDOTIN. [Suspect]
     Active Substance: POLATUZUMAB VEDOTIN
     Indication: B-CELL LYMPHOMA
     Dosage: DATE OF MOST RECENT DOSE OF POLATUZUMAB VEDOTIN PRIOR TO AE ONSET 18/OCT/2017 (169.20 MG).?EITHER 1.
     Route: 042
     Dates: start: 20170816
  18. PLATELETS [Concomitant]
     Active Substance: HUMAN PLATELET, ALLOGENIC
     Route: 065
     Dates: start: 20180122, end: 20180122
  19. PLATELETS [Concomitant]
     Active Substance: HUMAN PLATELET, ALLOGENIC
     Route: 065
     Dates: start: 20180130, end: 20180130
  20. TAZOBAC [Concomitant]
     Active Substance: PIPERACILLIN SODIUM\TAZOBACTAM SODIUM
     Route: 065
     Dates: start: 20171129, end: 20171211
  21. TAZOBAC [Concomitant]
     Active Substance: PIPERACILLIN SODIUM\TAZOBACTAM SODIUM
     Route: 065
     Dates: start: 20171227, end: 20180102
  22. KCL [Concomitant]
     Active Substance: POTASSIUM CHLORIDE
     Route: 065
     Dates: start: 20171104, end: 20171104
  23. TOREM [Concomitant]
     Active Substance: TORSEMIDE
     Route: 065
     Dates: end: 20171031
  24. TOREM [Concomitant]
     Active Substance: TORSEMIDE
     Route: 065
     Dates: start: 20180201, end: 20180206
  25. PERFALGAN [Concomitant]
     Active Substance: ACETAMINOPHEN
     Route: 042
     Dates: start: 20171129, end: 20171129
  26. LINEZOLID. [Concomitant]
     Active Substance: LINEZOLID
     Route: 042
     Dates: start: 20171201, end: 20171210
  27. STEROFUNDIN [Concomitant]
     Active Substance: CALCIUM CHLORIDE\MAGNESIUM CHLORIDE\POTASSIUM CHLORIDE\SODIUM ACETATE\SODIUM CHLORIDE
     Route: 065
     Dates: start: 20171129, end: 20171129
  28. STEROFUNDIN [Concomitant]
     Active Substance: CALCIUM CHLORIDE\MAGNESIUM CHLORIDE\POTASSIUM CHLORIDE\SODIUM ACETATE\SODIUM CHLORIDE
     Route: 065
     Dates: start: 20180119, end: 20180121
  29. SOBELIN (GERMANY) [Concomitant]
     Dosage: 3X600 MG
     Route: 065
     Dates: start: 20171221, end: 20171227
  30. SOBELIN (GERMANY) [Concomitant]
     Route: 042
     Dates: start: 20180212, end: 20180221
  31. NOVAMINE [Concomitant]
     Active Substance: ALANINE\ARGININE\ASPARTIC ACID\GLUTAMIC ACID\GLYCINE\HISTIDINE\ISOLEUCINE\LEUCINE\LYSINE ACETATE\METHIONINE\PHENYLALANINE\PROLINE\SERINE\THREONINE\TRYPTOPHAN\TYROSINE\VALINE
     Dosage: 4X20DROPS
     Route: 065
     Dates: start: 20171227, end: 20171230
  32. VFEND [Concomitant]
     Active Substance: VORICONAZOLE
     Route: 065
     Dates: start: 20180122
  33. DEXA (GERMANY) [Concomitant]
     Route: 065
     Dates: start: 20180131
  34. MERONEM [Concomitant]
     Active Substance: MEROPENEM
     Route: 042
     Dates: start: 20180213, end: 20180226
  35. CICLOSPORIN [Concomitant]
     Active Substance: CYCLOSPORINE
     Route: 065
     Dates: start: 20180214
  36. ATEZOLIZUMAB. [Suspect]
     Active Substance: ATEZOLIZUMAB
     Indication: B-CELL LYMPHOMA
     Dosage: DATE OF MOST RECENT DOSE OF ATEZOLIZUMAB PRIOR TO AE ONSET 18/OCT/2017
     Route: 042
     Dates: start: 20170906
  37. PANTOZOL [Concomitant]
     Active Substance: PANTOPRAZOLE SODIUM
     Route: 065
     Dates: start: 20171018
  38. PLATELETS [Concomitant]
     Active Substance: HUMAN PLATELET, ALLOGENIC
     Indication: THROMBOCYTOPENIA
     Route: 065
     Dates: start: 20171010, end: 20171010
  39. BETNESOL (GERMANY) [Concomitant]
     Route: 065
     Dates: start: 20171103
  40. ACICLOVIR [Concomitant]
     Active Substance: ACYCLOVIR
     Dosage: VIRALE PROPHYLAXIS
     Route: 065
     Dates: start: 20171107, end: 20180509
  41. NEUPOGEN [Concomitant]
     Active Substance: FILGRASTIM
     Route: 065
     Dates: start: 20180212, end: 20180214
  42. STEROFUNDIN [Concomitant]
     Active Substance: CALCIUM CHLORIDE\MAGNESIUM CHLORIDE\POTASSIUM CHLORIDE\SODIUM ACETATE\SODIUM CHLORIDE
     Route: 065
     Dates: start: 20171201, end: 20171211
  43. AMOXICLAV [Concomitant]
     Active Substance: AMOXICILLIN\CLAVULANATE POTASSIUM
     Route: 065
     Dates: start: 20171210, end: 20171214
  44. AMOXICLAV [Concomitant]
     Active Substance: AMOXICILLIN\CLAVULANATE POTASSIUM
     Dosage: 875/125MG
     Route: 065
     Dates: start: 20171221, end: 20171227
  45. SOBELIN (GERMANY) [Concomitant]
     Route: 065
     Dates: start: 20180211, end: 20180212
  46. KALIUMCHLORID [Concomitant]
     Active Substance: POTASSIUM CHLORIDE
     Route: 042
     Dates: start: 20180124, end: 20180128
  47. INSUMAN COMB [Concomitant]
     Active Substance: INSULIN HUMAN
     Route: 058
     Dates: start: 20180207, end: 20180213
  48. ACIC [Concomitant]
     Active Substance: ACYCLOVIR
     Indication: PROPHYLAXIS
     Route: 065
     Dates: start: 20170823, end: 20171031
  49. BEROTEC [Concomitant]
     Active Substance: FENOTEROL HYDROBROMIDE
     Indication: PROPHYLAXIS
     Route: 065
     Dates: start: 20170920
  50. CLEXANE [Concomitant]
     Active Substance: ENOXAPARIN SODIUM
     Route: 065
     Dates: start: 20171227, end: 20180126
  51. NEUPOGEN [Concomitant]
     Active Substance: FILGRASTIM
     Dosage: 30 MIO E/ 0,5ML
     Route: 065
     Dates: start: 20171130, end: 20171201
  52. NEUPOGEN [Concomitant]
     Active Substance: FILGRASTIM
     Dosage: 30 MIO E/ 0,5ML
     Route: 065
     Dates: start: 20171205, end: 20171207
  53. FLUCONAZOL [Concomitant]
     Active Substance: FLUCONAZOLE
     Route: 065
     Dates: start: 20171228, end: 20180110
  54. KIOVIG [Concomitant]
     Active Substance: HUMAN IMMUNOGLOBULIN G
     Indication: BLOOD IMMUNOGLOBULIN G DECREASED
     Route: 042
     Dates: start: 20180119, end: 20180119
  55. FLOXAL [Concomitant]
     Active Substance: OFLOXACIN
     Route: 065
     Dates: start: 20180128
  56. SMOFKABIVEN PERIPHERAL [Concomitant]
     Route: 042
     Dates: start: 20180205, end: 20180206
  57. LANTUS [Concomitant]
     Active Substance: INSULIN GLARGINE
     Route: 058
     Dates: start: 20180214
  58. VITAMIN A [Concomitant]
     Active Substance: VITAMIN A
     Dosage: EYE OINTMENT
     Route: 065
     Dates: start: 20180214
  59. OBINUTUZUMAB. [Suspect]
     Active Substance: OBINUTUZUMAB
     Indication: B-CELL LYMPHOMA
     Dosage: A FLAT DOSE OF 1000 MG ON DAYS 1, 8, AND 15 OF CYCLE 1, AND ON DAY 1 OF CYCLES 2?6, GIVEN IN 21?DAY
     Route: 042
     Dates: start: 20170816
  60. GLANDOMED [Concomitant]
     Route: 065
     Dates: start: 20171031
  61. CLEXANE [Concomitant]
     Active Substance: ENOXAPARIN SODIUM
     Route: 058
     Dates: start: 20171129, end: 20171219
  62. EFFLUMIDEX [Concomitant]
     Route: 065
     Dates: start: 20171211, end: 20180119
  63. PALLADON [Concomitant]
     Active Substance: HYDROMORPHONE
     Route: 065
     Dates: start: 20171227, end: 20180103
  64. CANDIO HERMAL [Concomitant]
     Route: 065
     Dates: start: 20180119, end: 20180206
  65. PLATELETS [Concomitant]
     Active Substance: HUMAN PLATELET, ALLOGENIC
     Route: 042
     Dates: start: 20180201, end: 20180201
  66. TAZOBAC [Concomitant]
     Active Substance: PIPERACILLIN SODIUM\TAZOBACTAM SODIUM
     Indication: C-REACTIVE PROTEIN INCREASED
     Route: 065
     Dates: start: 20171031, end: 20171106
  67. KCL [Concomitant]
     Active Substance: POTASSIUM CHLORIDE
     Dosage: 60 MVAL
     Route: 065
     Dates: start: 20171101, end: 20171101
  68. VIGANTOLETTEN [Concomitant]
     Active Substance: CHOLECALCIFEROL
     Route: 065
     Dates: start: 20171107
  69. NACL .9% [Concomitant]
     Route: 065
     Dates: start: 20171130, end: 20171130
  70. SMOFKABIVEN [Concomitant]
     Active Substance: AMINO ACIDS\DEXTROSE\ELECTROLYTES NOS\SOYBEAN OIL
     Dosage: ZENTRAL?1100KCAL
     Route: 065
     Dates: start: 20180214, end: 20180324
  71. DEXAPOS COMOD [Concomitant]
     Route: 065
     Dates: start: 20180119, end: 20180119
  72. PROGRAF [Concomitant]
     Active Substance: TACROLIMUS
     Route: 065
     Dates: start: 20180126
  73. SMOFKABIVEN PERIPHERAL [Concomitant]
     Route: 042
     Dates: start: 20180207, end: 20180213
  74. ACTRAPID [Concomitant]
     Active Substance: INSULIN HUMAN
     Route: 058
     Dates: start: 20180205
  75. MERONEM [Concomitant]
     Active Substance: MEROPENEM
     Route: 042
     Dates: start: 20180320
  76. PLATELETS [Concomitant]
     Active Substance: HUMAN PLATELET, ALLOGENIC
     Route: 065
     Dates: start: 20180124, end: 20180124
  77. PREDNITOP (GERMANY) [Concomitant]
     Route: 065
     Dates: start: 20171102, end: 20180119
  78. NEUPOGEN [Concomitant]
     Active Substance: FILGRASTIM
     Route: 065
     Dates: start: 20180205, end: 20180205
  79. STEROFUNDIN [Concomitant]
     Active Substance: CALCIUM CHLORIDE\MAGNESIUM CHLORIDE\POTASSIUM CHLORIDE\SODIUM ACETATE\SODIUM CHLORIDE
     Route: 042
     Dates: start: 20171031, end: 20171106
  80. STEROFUNDIN [Concomitant]
     Active Substance: CALCIUM CHLORIDE\MAGNESIUM CHLORIDE\POTASSIUM CHLORIDE\SODIUM ACETATE\SODIUM CHLORIDE
     Route: 065
     Dates: start: 20180122, end: 20180412
  81. CIPROFLOXACIN. [Concomitant]
     Active Substance: CIPROFLOXACIN
     Route: 065
     Dates: start: 20171210, end: 20171214
  82. AMPHO MORONAL [Concomitant]
     Active Substance: AMPHOTERICIN B
     Route: 065
     Dates: start: 20171202, end: 20180125
  83. FLUCONAZOL [Concomitant]
     Active Substance: FLUCONAZOLE
     Route: 065
     Dates: start: 20171221, end: 20171225
  84. SMOFKABIVEN [Concomitant]
     Active Substance: AMINO ACIDS\DEXTROSE\ELECTROLYTES NOS\SOYBEAN OIL
     Route: 065
     Dates: start: 20171206, end: 20171209
  85. PENTACARINAT [Concomitant]
     Active Substance: PENTAMIDINE ISETHIONATE
     Indication: PROPHYLAXIS
     Route: 065
     Dates: start: 20170920
  86. KCL [Concomitant]
     Active Substance: POTASSIUM CHLORIDE
     Route: 042
     Dates: start: 20180206
  87. TOREM [Concomitant]
     Active Substance: TORSEMIDE
     Route: 065
     Dates: start: 20171130, end: 20180119
  88. NEUPOGEN [Concomitant]
     Active Substance: FILGRASTIM
     Route: 065
     Dates: start: 20171227, end: 20171228
  89. NACL .9% [Concomitant]
     Route: 065
     Dates: start: 20180117, end: 20180122
  90. NACL .9% [Concomitant]
     Dosage: NOSE SPRAY
     Route: 065
     Dates: start: 20180227
  91. LAXANS (BISACODYL) [Concomitant]
     Active Substance: BISACODYL
     Route: 065
     Dates: start: 20180128, end: 20180128

REACTIONS (3)
  - Scleritis [Recovered/Resolved]
  - Pyrexia [Recovered/Resolved]
  - Dermatitis [Not Recovered/Not Resolved]

NARRATIVE: CASE EVENT DATE: 20171028
